FAERS Safety Report 12247427 (Version 3)
Quarter: 2016Q2

REPORT INFORMATION
  Report Type: Spontaneous
  Country: US (occurrence: US)
  Receive Date: 20160407
  Receipt Date: 20160505
  Transmission Date: 20160815
  Serious: No
  Sender: FDA-Public Use
  Company Number: US-009507513-1603USA014224

PATIENT
  Age: 64 Year
  Sex: Male
  Weight: 84.81 kg

DRUGS (4)
  1. SUTENT [Suspect]
     Active Substance: SUNITINIB MALATE
     Dosage: TAKEN AT 7-7:30 AT NIGHT, 28 DAYS ON AND 14 DAYS OFF.
     Dates: start: 20160217
  2. PRINIVIL [Suspect]
     Active Substance: LISINOPRIL
     Indication: BLOOD PRESSURE INCREASED
     Dosage: UNK, ONCE A DAY
     Route: 048
  3. PRINIVIL [Suspect]
     Active Substance: LISINOPRIL
     Dosage: 10 MG, BID
     Route: 048
     Dates: start: 201603, end: 201603
  4. PRINIVIL [Suspect]
     Active Substance: LISINOPRIL
     Dosage: 3 TABLS, DAILY
     Route: 048
     Dates: start: 201604, end: 201604

REACTIONS (10)
  - Feeling abnormal [Unknown]
  - Skin exfoliation [Recovered/Resolved]
  - Rash [Not Recovered/Not Resolved]
  - Nocturia [Unknown]
  - Erythema [Recovered/Resolved]
  - Drug ineffective [Unknown]
  - Haemorrhoidal haemorrhage [Unknown]
  - Gastrooesophageal reflux disease [Unknown]
  - Rash [Recovered/Resolved]
  - Dry skin [Recovered/Resolved]

NARRATIVE: CASE EVENT DATE: 2016
